FAERS Safety Report 17423629 (Version 1)
Quarter: 2020Q1

REPORT INFORMATION
  Report Type: Spontaneous
  Country: IT (occurrence: IT)
  Receive Date: 20200217
  Receipt Date: 20200217
  Transmission Date: 20200409
  Serious: Yes (Other)
  Sender: FDA-Public Use
  Company Number: IT-BRISTOL-MYERS SQUIBB COMPANY-BMS-2020-010161

PATIENT
  Age: 61 Year
  Sex: Female

DRUGS (2)
  1. ABATACEPT [Suspect]
     Active Substance: ABATACEPT
     Indication: RHEUMATOID ARTHRITIS
     Dosage: 125 MILLIGRAM
     Route: 058
     Dates: start: 201803
  2. ABATACEPT [Suspect]
     Active Substance: ABATACEPT
     Indication: INTERSTITIAL LUNG DISEASE
     Route: 065

REACTIONS (1)
  - Antisynthetase syndrome [Unknown]

NARRATIVE: CASE EVENT DATE: 201812
